FAERS Safety Report 7583306-7 (Version None)
Quarter: 2011Q2

REPORT INFORMATION
  Report Type: 
  Country: None (occurrence: None)
  Receive Date: 20110623
  Receipt Date: 20110616
  Transmission Date: 20111010
  Serious: Yes (Life-Threatening, Hospitalization, Other)
  Sender: FDA-Public Use
  Company Number: 201110721

PATIENT
  Age: 51 Year
  Sex: Male

DRUGS (11)
  1. RAMIPRIL [Concomitant]
  2. ACETAMINOPHEN AND CODEINE PHOSPHATE [Concomitant]
  3. FOLIC ACID [Concomitant]
  4. VITAMIN B COMPLEX CAP [Concomitant]
  5. SITAGLIPTIN [Concomitant]
  6. ASPIRIN [Concomitant]
  7. DIPYRIDAMOLE [Concomitant]
  8. SIMVASTATIN [Concomitant]
  9. TIZANIDE [Concomitant]
  10. METFORMIN HCL [Concomitant]
  11. LIORESAL [Suspect]
     Indication: MUSCLE SPASTICITY
     Dosage: 90 MG, DAILY, INTRATHECAL
     Route: 037
     Dates: start: 20090301

REACTIONS (1)
  - HYPOTENSION [None]
